FAERS Safety Report 6086165-7 (Version None)
Quarter: 2009Q1

REPORT INFORMATION
  Report Type: 
  Country: None (occurrence: None)
  Receive Date: 20090217
  Receipt Date: 20090217
  Transmission Date: 20090719
  Serious: Yes (Life-Threatening, Hospitalization, Other)
  Sender: FDA-Public Use
  Company Number: None

PATIENT
  Age: 26 Year
  Sex: Female
  Weight: 82.5547 kg

DRUGS (1)
  1. NICODERM CQ [Suspect]
     Indication: SMOKING CESSATION THERAPY
     Dosage: 1 PATCH DAILY TRANSDERMAL
     Route: 062
     Dates: start: 19991201

REACTIONS (10)
  - ABNORMAL DREAMS [None]
  - BRAIN INJURY [None]
  - CEREBRAL ARTERY OCCLUSION [None]
  - DISTURBANCE IN ATTENTION [None]
  - HEADACHE [None]
  - HYPOAESTHESIA [None]
  - INSOMNIA [None]
  - MOOD SWINGS [None]
  - SOMNOLENCE [None]
  - TOBACCO WITHDRAWAL SYMPTOMS [None]
